FAERS Safety Report 7543881-5 (Version None)
Quarter: 2011Q2

REPORT INFORMATION
  Report Type: 
  Country: None (occurrence: None)
  Receive Date: 20110613
  Receipt Date: 20110607
  Transmission Date: 20111010
  Serious: Yes (Other)
  Sender: FDA-Public Use
  Company Number: US-ROCHE-749870

PATIENT
  Sex: Male
  Weight: 65.8 kg

DRUGS (3)
  1. ACCUTANE [Suspect]
     Indication: ACNE
     Route: 065
     Dates: start: 20081201
  2. ACCUTANE [Suspect]
     Route: 065
     Dates: start: 20091021, end: 20091125
  3. ACCUTANE [Suspect]
     Route: 065
     Dates: start: 20090120, end: 20090401

REACTIONS (8)
  - NASAL CONGESTION [None]
  - GASTROINTESTINAL INJURY [None]
  - DEPRESSION [None]
  - SUICIDAL IDEATION [None]
  - INTESTINAL OBSTRUCTION [None]
  - INFLAMMATORY BOWEL DISEASE [None]
  - CROHN'S DISEASE [None]
  - RHINITIS [None]
